FAERS Safety Report 9304426 (Version 1)
Quarter: 2013Q2

REPORT INFORMATION
  Report Type: Spontaneous
  Country: CH (occurrence: CH)
  Receive Date: 20130522
  Receipt Date: 20130522
  Transmission Date: 20140414
  Serious: Yes (Other)
  Sender: FDA-Public Use
  Company Number: CH-VERTEX PHARMACEUTICALS INC-2013-006312

PATIENT
  Age: 48 Year
  Sex: Male

DRUGS (3)
  1. INCIVO [Suspect]
     Indication: HEPATITIS C
     Route: 048
     Dates: start: 2012, end: 2012
  2. INTERFERON [Concomitant]
     Indication: HEPATITIS C
     Dates: start: 2012
  3. RIBAVIRIN [Concomitant]
     Indication: HEPATITIS C
     Dates: start: 2012

REACTIONS (5)
  - Leukopenia [Unknown]
  - Anaemia [Recovered/Resolved]
  - Influenza [Unknown]
  - Rash [Recovered/Resolved]
  - Pruritus [Unknown]
